FAERS Safety Report 9814462 (Version 2)
Quarter: 2014Q1

REPORT INFORMATION
  Report Type: Spontaneous
  Country: US (occurrence: US)
  Receive Date: 20140113
  Receipt Date: 20140120
  Transmission Date: 20141002
  Serious: Yes (Death, Other)
  Sender: FDA-Public Use
  Company Number: US-BAXTER-2014BAX000670

PATIENT
  Sex: Male

DRUGS (1)
  1. DIANEAL PD2 [Suspect]
     Indication: RENAL FAILURE CHRONIC
     Dosage: 6 BAGS PER DAY
     Route: 033
     Dates: start: 20131012, end: 20131228

REACTIONS (5)
  - Head injury [Fatal]
  - Brain death [Fatal]
  - Cerebral haemorrhage [Fatal]
  - Fall [Fatal]
  - Unresponsive to stimuli [Unknown]
